FAERS Safety Report 8525547-8 (Version None)
Quarter: 2012Q3

REPORT INFORMATION
  Report Type: 
  Country: None (occurrence: None)
  Receive Date: 20120710
  Receipt Date: 20120629
  Transmission Date: 20120928
  Serious: Yes (Hospitalization)
  Sender: FDA-Public Use
  Company Number: DSA_58221_2012

PATIENT
  Age: 20 Year
  Sex: Female

DRUGS (2)
  1. DICLOFENAC (DICLOFENAC) 50 MG [Suspect]
     Indication: TIBIA FRACTURE
     Dosage: (50 MG BID), (50 MG BID)
  2. DICLOFENAC (DICLOFENAC) 50 MG [Suspect]
     Indication: TIBIA FRACTURE
     Dosage: (50 MG BID), (50 MG BID)

REACTIONS (4)
  - PLACENTAL INSUFFICIENCY [None]
  - CAESAREAN SECTION [None]
  - MATERNAL EXPOSURE DURING PREGNANCY [None]
  - OLIGOHYDRAMNIOS [None]
